FAERS Safety Report 6749452-2 (Version None)
Quarter: 2010Q2

REPORT INFORMATION
  Report Type: 
  Country: None (occurrence: None)
  Receive Date: 20100601
  Receipt Date: 20100517
  Transmission Date: 20101027
  Serious: Yes (Other)
  Sender: FDA-Public Use
  Company Number: GB-PFIZER INC-2010062419

PATIENT
  Age: 57 Year
  Sex: Male

DRUGS (5)
  1. HEPARIN SODIUM [Suspect]
     Dosage: 2500 IU, SINGLE
     Route: 058
  2. HEPARIN SODIUM [Suspect]
     Dosage: 5000 IU, 3X/DAY
     Route: 058
  3. HEPARIN SODIUM [Suspect]
     Dosage: 5000 IU,
     Route: 042
  4. ENOXAPARIN SODIUM [Suspect]
     Dosage: 40 MG, 1X/DAY
  5. WARFARIN [Concomitant]

REACTIONS (2)
  - HEPARIN-INDUCED THROMBOCYTOPENIA [None]
  - TRANSIENT GLOBAL AMNESIA [None]
